FAERS Safety Report 12091682 (Version 2)
Quarter: 2016Q3

REPORT INFORMATION
  Report Type: Report from Study
  Country: GB (occurrence: GB)
  Receive Date: 20160218
  Receipt Date: 20160711
  Transmission Date: 20161109
  Serious: Yes (Hospitalization, Other)
  Sender: FDA-Public Use
  Company Number: GB-GILEAD-2016-0197784

PATIENT
  Sex: Male

DRUGS (6)
  1. IDELALISIB [Suspect]
     Active Substance: IDELALISIB
     Indication: PRODUCT USED FOR UNKNOWN INDICATION
     Dosage: 150 MG, BID
     Route: 065
     Dates: start: 20150825, end: 20160127
  2. IMMUNOGLOBULIN                     /00025201/ [Concomitant]
     Active Substance: HUMAN IMMUNOGLOBULIN G
     Dosage: MONTHLY
  3. SEPTRIN [Concomitant]
     Active Substance: SULFAMETHOXAZOLE\TRIMETHOPRIM
  4. ACYCLOVIR                          /00587301/ [Concomitant]
     Active Substance: ACYCLOVIR
  5. ENTECAVIR. [Concomitant]
     Active Substance: ENTECAVIR
  6. IDELALISIB [Suspect]
     Active Substance: IDELALISIB
     Dosage: 100 MG, BID
     Route: 065
     Dates: start: 20160309

REACTIONS (4)
  - Dehydration [Recovered/Resolved]
  - Acute kidney injury [Recovered/Resolved]
  - Colitis [Recovered/Resolved]
  - Diarrhoea [Recovered/Resolved]

NARRATIVE: CASE EVENT DATE: 201601
